FAERS Safety Report 10163200 (Version 1)
Quarter: 2014Q2

REPORT INFORMATION
  Report Type: Spontaneous
  Country: IT (occurrence: IT)
  Receive Date: 20140509
  Receipt Date: 20140509
  Transmission Date: 20141212
  Serious: Yes (Death, Other)
  Sender: FDA-Public Use
  Company Number: IT-JNJFOC-20140503113

PATIENT
  Sex: 0

DRUGS (9)
  1. DARUNAVIR [Suspect]
     Indication: HIV INFECTION
     Route: 048
  2. DARUNAVIR [Suspect]
     Indication: HIV INFECTION
     Route: 048
  3. RITONAVIR [Suspect]
     Indication: HIV INFECTION
     Route: 065
  4. RITONAVIR [Suspect]
     Indication: HIV INFECTION
     Route: 065
  5. OTHER ANTIVIRALS [Interacting]
     Indication: HIV INFECTION
     Route: 065
  6. PROTEASE INHIBITORS [Interacting]
     Indication: HIV INFECTION
     Route: 065
  7. NUCLEOSIDE REVERSE TRANSCRIPTASE INHIBITORS [Interacting]
     Indication: HIV INFECTION
     Route: 065
  8. NON-NUCLEOSIDE REVERSE TRANSCRIPTASE INHIBITORS [Interacting]
     Indication: HIV INFECTION
     Route: 065
  9. CCR5 [Interacting]
     Indication: HIV INFECTION
     Route: 065

REACTIONS (30)
  - Death [Fatal]
  - Blood antidiuretic hormone increased [Unknown]
  - Rash [Unknown]
  - Virologic failure [Recovering/Resolving]
  - Neuropathy peripheral [Unknown]
  - Hepatic failure [Unknown]
  - Pancreatic enzymes increased [Unknown]
  - Muscular weakness [Unknown]
  - Myalgia [Unknown]
  - Myocardial infarction [Unknown]
  - Spinal fracture [Unknown]
  - Convulsion [Unknown]
  - Confusional state [Unknown]
  - Hyperglycaemia [Unknown]
  - Hypertransaminasaemia [Unknown]
  - Blood creatine phosphokinase increased [Unknown]
  - Lipids increased [Unknown]
  - Blood cholesterol increased [Unknown]
  - Blood triglycerides increased [Unknown]
  - Hyperglycaemia [Unknown]
  - Alanine aminotransferase increased [Unknown]
  - Blood creatinine increased [Unknown]
  - Treatment failure [Unknown]
  - Drug interaction [Unknown]
  - Adverse event [Unknown]
  - Treatment noncompliance [Unknown]
  - Asthenia [Unknown]
  - Pruritus [Unknown]
  - Nausea [Unknown]
  - Vomiting [Unknown]
